FAERS Safety Report 10197212 (Version 3)
Quarter: 2014Q4

REPORT INFORMATION
  Report Type: Spontaneous
  Country: US (occurrence: US)
  Receive Date: 20140527
  Receipt Date: 20141216
  Transmission Date: 20150528
  Serious: Yes (Death, Hospitalization, Other)
  Sender: FDA-Public Use
  Company Number: US-GLAXOSMITHKLINE-A1074041A

PATIENT
  Sex: Female

DRUGS (1)
  1. TYKERB [Suspect]
     Active Substance: LAPATINIB DITOSYLATE
     Indication: BREAST CANCER
     Dosage: FIVE 250 MG TABLETS ON DAYS 1 THROUGH 21
     Route: 048
     Dates: start: 20140422

REACTIONS (3)
  - Diarrhoea [Unknown]
  - Hospitalisation [Unknown]
  - Death [Fatal]
